FAERS Safety Report 5685027-4 (Version None)
Quarter: 2008Q1

REPORT INFORMATION
  Report Type: 
  Country: None (occurrence: None)
  Receive Date: 20080328
  Receipt Date: 19980316
  Transmission Date: 20080703
  Serious: Yes (Death)
  Sender: FDA-Public Use
  Company Number: GB-ROCHE-96374

PATIENT
  Age: 77 Year
  Sex: Male
  Weight: 60 kg

DRUGS (18)
  1. ROCEPHIN [Suspect]
     Route: 042
     Dates: start: 19980107, end: 19980108
  2. VANCOMYCIN [Concomitant]
     Route: 042
     Dates: start: 19980108, end: 19980110
  3. VANCOMYCIN [Concomitant]
     Route: 042
     Dates: start: 19980110, end: 19980111
  4. ATROVENT [Concomitant]
     Route: 055
     Dates: start: 19971226
  5. VENTOLIN [Concomitant]
     Route: 055
     Dates: start: 19971226
  6. MICONAZOLE NITRATE [Concomitant]
     Indication: ORAL CANDIDIASIS
     Route: 061
     Dates: start: 19971231
  7. DIFFLAM [Concomitant]
     Indication: ORAL CANDIDIASIS
     Route: 061
     Dates: start: 19971229, end: 19980105
  8. AMIODARONE HCL [Concomitant]
     Indication: SUPRAVENTRICULAR TACHYCARDIA
     Route: 048
     Dates: start: 19971227, end: 19980101
  9. AMIODARONE HCL [Concomitant]
     Route: 048
     Dates: start: 19980101, end: 19980108
  10. AMIODARONE HCL [Concomitant]
     Route: 048
     Dates: start: 19980108
  11. FOLIC ACID [Concomitant]
     Route: 048
     Dates: start: 19971226
  12. SENNA [Concomitant]
     Indication: CONSTIPATION
     Route: 048
     Dates: start: 19971226
  13. CO-DANTHRAMER [Concomitant]
     Indication: CONSTIPATION
     Route: 048
     Dates: start: 19971226
  14. TEMAZEPAM [Concomitant]
     Indication: INSOMNIA
     Route: 048
     Dates: start: 19971227
  15. ACETAMINOPHEN [Concomitant]
     Indication: PAIN
     Route: 048
     Dates: start: 19971226
  16. OFLOXACIN [Concomitant]
     Route: 048
     Dates: start: 19971229, end: 19980106
  17. BACTROBAN [Concomitant]
     Dosage: ROUTE IS NASAL
     Route: 050
     Dates: start: 19971231
  18. AQUASEPT [Concomitant]
     Route: 065
     Dates: start: 19971231, end: 19980106

REACTIONS (2)
  - DEATH [None]
  - RASH MACULO-PAPULAR [None]
